FAERS Safety Report 5695356-6 (Version None)
Quarter: 2008Q2

REPORT INFORMATION
  Report Type: 
  Country: None (occurrence: None)
  Receive Date: 20080404
  Receipt Date: 20080402
  Transmission Date: 20081010
  Serious: Yes (Hospitalization)
  Sender: FDA-Public Use
  Company Number: GB-MERCK-0804GBR00015

PATIENT
  Sex: Female

DRUGS (6)
  1. ISENTRESS [Suspect]
     Indication: HIV INFECTION
     Route: 048
     Dates: start: 20080201, end: 20080301
  2. TENOFOVIR [Concomitant]
     Route: 065
  3. LAMIVUDINE [Concomitant]
     Route: 065
  4. TACROLIMUS [Concomitant]
     Route: 065
  5. [THERAPY UNSPECIFIED] [Concomitant]
     Route: 065
  6. EMTRICITABINE AND TENOFOVIR DISOPROXIL FUMARATE [Concomitant]
     Route: 065

REACTIONS (1)
  - HEPATIC ENZYME INCREASED [None]
